FAERS Safety Report 24395544 (Version 1)
Quarter: 2024Q4

REPORT INFORMATION
  Report Type: Spontaneous
  Country: US (occurrence: US)
  Receive Date: 20241004
  Receipt Date: 20241004
  Transmission Date: 20250115
  Serious: Yes (Other)
  Sender: AUROBINDO
  Company Number: US-AUROBINDO-AUR-APL-2024-047380

PATIENT
  Age: 38 Year
  Sex: Male

DRUGS (6)
  1. CARBIDOPA\LEVODOPA [Suspect]
     Active Substance: CARBIDOPA\LEVODOPA
     Indication: Parkinson^s disease
     Dosage: 100/25 ONE TABLET FIVE TIMES DAILY
     Route: 065
  2. CARBIDOPA\LEVODOPA [Suspect]
     Active Substance: CARBIDOPA\LEVODOPA
     Dosage: 100/25 TWO TABLETS FIVE TIMES DAILY
     Route: 065
  3. CARBIDOPA\LEVODOPA [Suspect]
     Active Substance: CARBIDOPA\LEVODOPA
     Dosage: 25/100, ONE TABLET, THREE TIMES DAILY
     Route: 065
  4. ENTACAPONE [Suspect]
     Active Substance: ENTACAPONE
     Indication: Parkinson^s disease
     Dosage: 200 MILLIGRAM, FIVE TIMES DAILY
     Route: 065
  5. ENTACAPONE [Suspect]
     Active Substance: ENTACAPONE
     Dosage: 200 MILLIGRAM, ONCE A DAY
     Route: 065
  6. RASAGILINE [Suspect]
     Active Substance: RASAGILINE
     Indication: Parkinson^s disease
     Dosage: 1 MILLIGRAM, FIVE TIMES DAILY
     Route: 065

REACTIONS (1)
  - Drug ineffective [Unknown]
